FAERS Safety Report 16590020 (Version 1)
Quarter: 2019Q3

REPORT INFORMATION
  Report Type: Other
  Country: US (occurrence: US)
  Receive Date: 20190718
  Receipt Date: 20190718
  Transmission Date: 20191004
  Serious: No
  Sender: FDA-Public Use
  Company Number: US-SWEDISH ORPHAN BIOVITRUM-2019US0487

PATIENT
  Sex: Female

DRUGS (4)
  1. FOLATE [Concomitant]
     Active Substance: FOLATE SODIUM
  2. RESTASIS [Concomitant]
     Active Substance: CYCLOSPORINE
  3. KINERET [Suspect]
     Active Substance: ANAKINRA
     Route: 058
  4. METHOTREXATE. [Concomitant]
     Active Substance: METHOTREXATE

REACTIONS (1)
  - Injection site pain [Unknown]
